FAERS Safety Report 9322586 (Version 1)
Quarter: 2013Q2

REPORT INFORMATION
  Report Type: Spontaneous
  Country: US (occurrence: US)
  Receive Date: 20130531
  Receipt Date: 20130531
  Transmission Date: 20140414
  Serious: No
  Sender: FDA-Public Use
  Company Number: US-ASTRAZENECA-2013SE33704

PATIENT
  Age: 82 Year
  Sex: Female
  Weight: 27.2 kg

DRUGS (4)
  1. NEXIUM [Suspect]
     Indication: GASTROOESOPHAGEAL REFLUX DISEASE
     Route: 048
     Dates: start: 1998
  2. HYDROCHLOROTHIAZIDE [Concomitant]
  3. BYSTOLIC [Concomitant]
     Indication: HYPERTENSION
  4. BYSTOLIC [Concomitant]
     Indication: HYPERTENSION

REACTIONS (4)
  - Osteoporosis [Unknown]
  - Visual acuity reduced [Unknown]
  - Hypertension [Unknown]
  - Diarrhoea [Unknown]
